FAERS Safety Report 25077069 (Version 1)
Quarter: 2025Q1

REPORT INFORMATION
  Report Type: Spontaneous
  Country: FR (occurrence: FR)
  Receive Date: 20250314
  Receipt Date: 20250314
  Transmission Date: 20250409
  Serious: Yes (Other)
  Sender: JOHNSON AND JOHNSON
  Company Number: FR-JNJFOC-20250324241

PATIENT
  Age: 61 Year
  Sex: Male

DRUGS (5)
  1. ERLEADA [Suspect]
     Active Substance: APALUTAMIDE
     Indication: Prostate cancer
     Route: 048
     Dates: start: 20240919, end: 20241001
  2. DEGARELIX [Suspect]
     Active Substance: DEGARELIX
     Indication: Prostate cancer
     Route: 058
     Dates: start: 20240715, end: 20240715
  3. DEGARELIX [Suspect]
     Active Substance: DEGARELIX
     Route: 058
     Dates: start: 20240816, end: 20240816
  4. LOPERAMIDE [Concomitant]
     Active Substance: LOPERAMIDE
     Indication: Proctitis
     Route: 048
     Dates: start: 20241001
  5. ULTRAPROCT [AMPICILLIN SODIUM;SULBACTAM SODIUM] [Concomitant]
     Indication: Proctitis
     Route: 054
     Dates: start: 20240922

REACTIONS (1)
  - Neutropenia [Not Recovered/Not Resolved]

NARRATIVE: CASE EVENT DATE: 20241001
